FAERS Safety Report 4687305-4 (Version None)
Quarter: 2005Q2

REPORT INFORMATION
  Report Type: 
  Country: None (occurrence: None)
  Receive Date: 20050608
  Receipt Date: 20050523
  Transmission Date: 20051028
  Serious: Yes (Hospitalization)
  Sender: FDA-Public Use
  Company Number: 2005BI001555

PATIENT
  Age: 58 Year
  Sex: Male

DRUGS (9)
  1. AVONEX [Suspect]
     Indication: MULTIPLE SCLEROSIS
     Dosage: 8 UG; QW; IM
     Route: 030
     Dates: start: 20040212
  2. AVONEX [Suspect]
     Indication: MULTIPLE SCLEROSIS
     Dosage: 30 UG; QW; IM
     Route: 030
  3. BACLOFEN [Concomitant]
  4. DETROL LA [Concomitant]
  5. LEXAPRO [Concomitant]
  6. FLOMAX [Concomitant]
  7. NEURONTIN [Concomitant]
  8. PROTONIX [Concomitant]
  9. LESCOL [Concomitant]

REACTIONS (6)
  - ASPIRATION [None]
  - FALL [None]
  - INFECTION [None]
  - MULTIPLE SCLEROSIS RELAPSE [None]
  - PNEUMONIA [None]
  - SUBDURAL HAEMATOMA [None]
